FAERS Safety Report 5625435-0 (Version None)
Quarter: 2008Q1

REPORT INFORMATION
  Report Type: 
  Country: None (occurrence: None)
  Receive Date: 20080211
  Receipt Date: 20080128
  Transmission Date: 20080703
  Serious: Yes (Hospitalization)
  Sender: FDA-Public Use
  Company Number: 231069J08USA

PATIENT
  Age: 55 Year
  Sex: Female
  Weight: 77.1115 kg

DRUGS (10)
  1. REBIF [Suspect]
     Indication: MULTIPLE SCLEROSIS
     Dosage: 44 MCG,3 IN 1 WEEKS,SUBCUTANEOUS
     Route: 058
     Dates: start: 20050901
  2. TYLENOL (COTYLENOL) [Concomitant]
  3. REGLAN [Concomitant]
  4. EFFEXOR [Concomitant]
  5. NORVASC [Concomitant]
  6. DIOVAN [Concomitant]
  7. PHENERGAN [Concomitant]
  8. LORAZEPAM [Concomitant]
  9. FOSAMAX [Concomitant]
  10. LORTAB [Concomitant]

REACTIONS (10)
  - BLOOD POTASSIUM DECREASED [None]
  - CONDITION AGGRAVATED [None]
  - DEHYDRATION [None]
  - DEPRESSION [None]
  - EAR INFECTION [None]
  - GASTROENTERITIS VIRAL [None]
  - LIVER FUNCTION TEST ABNORMAL [None]
  - LYMPHADENOPATHY [None]
  - RED BLOOD CELL COUNT DECREASED [None]
  - VERTIGO [None]
